FAERS Safety Report 16560758 (Version 1)
Quarter: 2019Q3

REPORT INFORMATION
  Report Type: Spontaneous
  Country: US (occurrence: US)
  Receive Date: 20190711
  Receipt Date: 20190711
  Transmission Date: 20191004
  Serious: No
  Sender: FDA-Public Use
  Company Number: US-SA-2019SA185899

PATIENT
  Age: 50 Year
  Sex: Female

DRUGS (7)
  1. DUPIXENT [Suspect]
     Active Substance: DUPILUMAB
     Indication: ASTHMA
     Dosage: 200 MG, QOW
     Route: 058
     Dates: start: 20190507
  2. ARIPIPRAZOLE. [Concomitant]
     Active Substance: ARIPIPRAZOLE
  3. VITAMIN B12 [Concomitant]
     Active Substance: CYANOCOBALAMIN
  4. DESVENLAFAXINE. [Concomitant]
     Active Substance: DESVENLAFAXINE
  5. FISH OIL [Concomitant]
     Active Substance: FISH OIL
  6. BIOTIN [Concomitant]
     Active Substance: BIOTIN
  7. ESZOPICLONE. [Concomitant]
     Active Substance: ESZOPICLONE

REACTIONS (3)
  - Dyspnoea [Unknown]
  - Pain [Unknown]
  - Balance disorder [Unknown]
